FAERS Safety Report 10611122 (Version 1)
Quarter: 2014Q4

REPORT INFORMATION
  Report Type: Spontaneous
  Country: US (occurrence: US)
  Receive Date: 20141126
  Receipt Date: 20141126
  Transmission Date: 20150529
  Serious: Yes (Other)
  Sender: FDA-Public Use
  Company Number: US-ELI_LILLY_AND_COMPANY-US201411006420

PATIENT
  Sex: Male

DRUGS (6)
  1. TRAMADOL [Concomitant]
     Active Substance: TRAMADOL
  2. DEPAKOTE [Concomitant]
     Active Substance: DIVALPROEX SODIUM
  3. OXYCODONE [Concomitant]
     Active Substance: OXYCODONE
  4. CYMBALTA [Suspect]
     Active Substance: DULOXETINE HYDROCHLORIDE
     Indication: DEPRESSION
     Dosage: 30 MG, QD
     Route: 065
  5. KLONOPIN [Concomitant]
     Active Substance: CLONAZEPAM
  6. CYMBALTA [Suspect]
     Active Substance: DULOXETINE HYDROCHLORIDE
     Indication: PAIN

REACTIONS (7)
  - Paraesthesia [Unknown]
  - Headache [Unknown]
  - Suicidal ideation [Unknown]
  - Anxiety [Unknown]
  - Diarrhoea [Unknown]
  - Drug withdrawal syndrome [Unknown]
  - Nausea [Unknown]
